FAERS Safety Report 10310652 (Version 1)
Quarter: 2014Q3

REPORT INFORMATION
  Report Type: Spontaneous
  Country: US (occurrence: None)
  Receive Date: 20140716
  Receipt Date: 20140716
  Transmission Date: 20150326
  Serious: Yes (Hospitalization, Disabling, Other)
  Sender: FDA-Public Use
  Company Number: None

PATIENT
  Age: 91 Year
  Sex: Female
  Weight: 85 kg

DRUGS (1)
  1. RISPERDAL [Suspect]
     Active Substance: RISPERIDONE
     Indication: PRODUCT USED FOR UNKNOWN INDICATION
     Route: 048

REACTIONS (9)
  - Infection [None]
  - Decreased interest [None]
  - Haemorrhage [None]
  - Feeling abnormal [None]
  - Fear [None]
  - Aphagia [None]
  - Asthenia [None]
  - Personality change [None]
  - Confusional state [None]

NARRATIVE: CASE EVENT DATE: 20140514
